FAERS Safety Report 6433160-1 (Version None)
Quarter: 2009Q4

REPORT INFORMATION
  Report Type: 
  Country: None (occurrence: None)
  Receive Date: 20091105
  Receipt Date: 20091026
  Transmission Date: 20100525
  Serious: Yes (Life-Threatening, Hospitalization)
  Sender: FDA-Public Use
  Company Number: 2008AL007804

PATIENT
  Age: 66 Year
  Sex: Male

DRUGS (16)
  1. DICLOFENAC SODIUM [Suspect]
     Indication: GOUT
     Dosage: 50 MG;BID
     Dates: start: 20080605, end: 20080607
  2. ATORVASTATIN [Concomitant]
  3. EZETIMIBE [Concomitant]
  4. METFORMIN HCL [Concomitant]
  5. ACETYLSALICYLIC ACID [Concomitant]
  6. DOXAZOSIN [Concomitant]
  7. LANSOPRAZOLE [Concomitant]
  8. PREGABALIN [Concomitant]
  9. ATENOLOL [Concomitant]
  10. ALLOPURINOL [Concomitant]
  11. TADALAFIL [Concomitant]
  12. FUROSEMIDE [Concomitant]
  13. FERROUS SULFATE TAB [Concomitant]
  14. PERINDOPRIL [Concomitant]
  15. PARACETAMOL [Concomitant]
  16. DIHYDROCODEINE BITARTRATE INJ [Concomitant]

REACTIONS (6)
  - BLOOD POTASSIUM INCREASED [None]
  - COMA SCALE ABNORMAL [None]
  - FALL [None]
  - METABOLIC ACIDOSIS [None]
  - RENAL FAILURE ACUTE [None]
  - RHABDOMYOLYSIS [None]
